FAERS Safety Report 19283670 (Version 1)
Quarter: 2021Q2

REPORT INFORMATION
  Report Type: Spontaneous
  Country: IT (occurrence: IT)
  Receive Date: 20210521
  Receipt Date: 20210521
  Transmission Date: 20210717
  Serious: Yes (Hospitalization)
  Sender: FDA-Public Use
  Company Number: IT-ABBVIE-21K-083-3909890-00

PATIENT
  Age: 45 Year
  Sex: Male

DRUGS (21)
  1. CITALOPRAM [Concomitant]
     Active Substance: CITALOPRAM HYDROBROMIDE
  2. ESCITALOPRAM [Concomitant]
     Active Substance: ESCITALOPRAM OXALATE
     Indication: ANTIDEPRESSANT THERAPY
  3. FLUOXETINE [Concomitant]
     Active Substance: FLUOXETINE HYDROCHLORIDE
     Indication: ANTIDEPRESSANT THERAPY
  4. DIVALPROEX SODIUM. [Suspect]
     Active Substance: DIVALPROEX SODIUM
     Route: 065
  5. TAMOXIFEN [Concomitant]
     Active Substance: TAMOXIFEN
     Indication: BIPOLAR II DISORDER
  6. TAMOXIFEN [Concomitant]
     Active Substance: TAMOXIFEN
     Indication: BREAST CANCER
  7. OLANZAPINE. [Concomitant]
     Active Substance: OLANZAPINE
  8. QUETIAPINE. [Concomitant]
     Active Substance: QUETIAPINE
     Indication: ANTIDEPRESSANT THERAPY
     Dosage: UNKNOWN
  9. DIVALPROEX SODIUM. [Suspect]
     Active Substance: DIVALPROEX SODIUM
     Indication: AFFECTIVE DISORDER
     Route: 065
  10. DIVALPROEX SODIUM. [Suspect]
     Active Substance: DIVALPROEX SODIUM
     Route: 065
  11. TRIMIPRAMINE [Concomitant]
     Active Substance: TRIMIPRAMINE
     Indication: ANTIDEPRESSANT THERAPY
  12. LITHIUM. [Concomitant]
     Active Substance: LITHIUM
  13. QUETIAPINE. [Concomitant]
     Active Substance: QUETIAPINE
  14. OLANZAPINE. [Concomitant]
     Active Substance: OLANZAPINE
     Indication: ANTIDEPRESSANT THERAPY
     Dosage: UNKNOWN
  15. LITHIUM. [Concomitant]
     Active Substance: LITHIUM
     Indication: BIPOLAR II DISORDER
     Dosage: UNKNOWN
  16. DELORAZEPAM [Concomitant]
     Active Substance: DELORAZEPAM
     Indication: ANTIDEPRESSANT THERAPY
  17. CITALOPRAM [Concomitant]
     Active Substance: CITALOPRAM HYDROBROMIDE
     Indication: ANTIDEPRESSANT THERAPY
     Dosage: UNKNOWN
  18. PAROXETINE. [Concomitant]
     Active Substance: PAROXETINE
     Indication: ANTIDEPRESSANT THERAPY
  19. SERTRALINE [Concomitant]
     Active Substance: SERTRALINE HYDROCHLORIDE
     Indication: ANTIDEPRESSANT THERAPY
  20. LITHIUM. [Concomitant]
     Active Substance: LITHIUM
  21. QUETIAPINE. [Concomitant]
     Active Substance: QUETIAPINE

REACTIONS (3)
  - Drug ineffective [Unknown]
  - Therapeutic product effect incomplete [Unknown]
  - Suicidal ideation [Unknown]
